FAERS Safety Report 8835199 (Version 1)
Quarter: 2012Q4

REPORT INFORMATION
  Report Type: 
  Country: US (occurrence: US)
  Receive Date: 20121011
  Receipt Date: 20121011
  Transmission Date: 20130627
  Serious: Yes (Hospitalization)
  Sender: FDA-Public Use
  Company Number: US-PFIZER INC-2012247295

PATIENT
  Sex: Female
  Weight: 107 kg

DRUGS (8)
  1. SUTENT [Suspect]
     Indication: METASTATIC RENAL CELL CARCINOMA
     Dosage: 50 mg
  2. SUTENT [Suspect]
     Dosage: 37.5 mg
  3. SUTENT [Suspect]
     Dosage: 25 mg, for 21 days followed by seven days rest for a 28 day cycle
  4. AVASTIN [Concomitant]
     Indication: MACULAR DEGENERATION
     Dosage: every four to six weeks
     Route: 047
  5. SYNTHROID [Concomitant]
     Dosage: 150 ug when not taking Sutent
  6. SYNTHROID [Concomitant]
     Dosage: 2 doses when taking Sutent
  7. PRESERVISION WITH LUTEIN [Concomitant]
     Dosage: UNK
  8. CALCIUM SUPPLEMENTS WITH VIT D [Concomitant]

REACTIONS (5)
  - Oral pain [Recovered/Resolved]
  - Nausea [Recovered/Resolved]
  - Vomiting [Recovered/Resolved]
  - Dehydration [Recovered/Resolved]
  - Vulvovaginal dryness [Unknown]
